FAERS Safety Report 16609517 (Version 1)
Quarter: 2019Q3

REPORT INFORMATION
  Report Type: Spontaneous
  Country: US (occurrence: US)
  Receive Date: 20190721
  Receipt Date: 20190721
  Transmission Date: 20191004
  Serious: Yes (Hospitalization)
  Sender: FDA-Public Use
  Company Number: None

PATIENT
  Age: 38 Year
  Sex: Male
  Weight: 112.5 kg

DRUGS (2)
  1. NEOMYCIN AND POLYMYXIN B SULFATES AND DEXAMETHASONE USP [Suspect]
     Active Substance: DEXAMETHASONE\NEOMYCIN SULFATE\POLYMYXIN B SULFATE
     Indication: SURGERY
     Route: 047
     Dates: start: 20181125, end: 20181126
  2. EQUATE LUBRICANT STYE [Suspect]
     Active Substance: MINERAL OIL\PETROLATUM
     Indication: HORDEOLUM
     Dosage: ?          QUANTITY:1 INCH;?
     Route: 047
     Dates: start: 20180823, end: 20180825

REACTIONS (6)
  - Post procedural complication [None]
  - Fusarium infection [None]
  - Eye disorder [None]
  - Economic problem [None]
  - Recalled product administered [None]
  - Product contamination microbial [None]

NARRATIVE: CASE EVENT DATE: 20180823
